FAERS Safety Report 10255350 (Version 1)
Quarter: 2014Q2

REPORT INFORMATION
  Report Type: Spontaneous
  Country: US (occurrence: US)
  Receive Date: 20140624
  Receipt Date: 20140624
  Transmission Date: 20141212
  Serious: No
  Sender: FDA-Public Use
  Company Number: US-PFIZER INC-2014172064

PATIENT
  Age: 77 Year
  Sex: Female
  Weight: 52.15 kg

DRUGS (4)
  1. CELEBREX [Suspect]
     Indication: SPINAL PAIN
     Dosage: 200 MG, 1X/DAY
     Route: 048
     Dates: start: 20140618
  2. CELEBREX [Suspect]
     Indication: NECK PAIN
  3. METOPROLOL [Concomitant]
     Indication: HYPERTENSION
     Dosage: UNK
  4. MECLIZINE [Concomitant]
     Indication: VERTIGO
     Dosage: UNK

REACTIONS (1)
  - Dizziness [Not Recovered/Not Resolved]
